FAERS Safety Report 15547326 (Version 1)
Quarter: 2018Q4

REPORT INFORMATION
  Report Type: Spontaneous
  Country: AU (occurrence: AU)
  Receive Date: 20181024
  Receipt Date: 20181024
  Transmission Date: 20190205
  Serious: Yes (Hospitalization)
  Sender: FDA-Public Use
  Company Number: AU-MYLANLABS-2018M1077083

PATIENT
  Age: 66 Year
  Sex: Female

DRUGS (3)
  1. NOTEN [Suspect]
     Active Substance: ATENOLOL
     Indication: PRODUCT USED FOR UNKNOWN INDICATION
     Dosage: 25 MG, QD
  2. NOTEN [Suspect]
     Active Substance: ATENOLOL
     Dosage: 50 MG, QD (FOR THE LAST 10 OR 11 YEARS )
     Dates: end: 201801
  3. OLMETEC [Concomitant]
     Active Substance: OLMESARTAN MEDOXOMIL
     Indication: PRODUCT USED FOR UNKNOWN INDICATION
     Dosage: UNK

REACTIONS (6)
  - Heart rate decreased [Unknown]
  - Tinnitus [Not Recovered/Not Resolved]
  - Disturbance in attention [Recovered/Resolved]
  - Malaise [Unknown]
  - Vertigo [Recovered/Resolved]
  - Feeling abnormal [Unknown]
